FAERS Safety Report 8130323-4 (Version None)
Quarter: 2012Q1

REPORT INFORMATION
  Report Type: 
  Country: None (occurrence: None)
  Receive Date: 20120210
  Receipt Date: 20120206
  Transmission Date: 20120608
  Serious: Yes (Other)
  Sender: FDA-Public Use
  Company Number: PHEH2012US001157

PATIENT
  Sex: Female
  Weight: 49.17 kg

DRUGS (8)
  1. RECLAST [Suspect]
     Indication: OSTEOPOROSIS
     Dosage: 5 MG, UNK
     Route: 042
     Dates: start: 20091201
  2. LORTAB [Concomitant]
     Indication: PAIN
     Dosage: 5 MG, UNK
     Route: 048
  3. LOSARTAN POTASSIUM AND HYDROCHLOROTHIAZIDE [Concomitant]
     Indication: HYPERTENSION
     Dosage: 1 TAB DAILY
     Route: 048
  4. NEURONTIN [Concomitant]
     Dosage: 100 MG, I-II QHS
     Route: 048
  5. RECLAST [Suspect]
     Dosage: 5 MG, UNK
     Route: 042
     Dates: start: 20101208
  6. RECLAST [Suspect]
     Dosage: 5 MG, UNK
     Route: 042
     Dates: start: 20111213
  7. PLAQUENIL [Concomitant]
     Dosage: 200 MG, BID
     Route: 048
  8. NIFEDIPINE [Concomitant]
     Dosage: 30 MG, 1 IN EVENING
     Route: 048

REACTIONS (4)
  - ORAL TORUS [None]
  - MOUTH ULCERATION [None]
  - INJURY [None]
  - OSTEONECROSIS OF JAW [None]
